FAERS Safety Report 6752188-5 (Version None)
Quarter: 2010Q2

REPORT INFORMATION
  Report Type: 
  Country: None (occurrence: None)
  Receive Date: 20100602
  Receipt Date: 20100528
  Transmission Date: 20101027
  Serious: Yes (Other)
  Sender: FDA-Public Use
  Company Number: US-BAYER-201024190NA

PATIENT
  Sex: Female

DRUGS (3)
  1. YASMIN [Suspect]
     Indication: DRUG USE FOR UNKNOWN INDICATION
     Route: 048
     Dates: start: 20050101, end: 20050801
  2. YASMIN [Suspect]
     Route: 048
     Dates: start: 20051001, end: 20060201
  3. YASMIN [Suspect]
     Route: 048
     Dates: start: 20070701, end: 20080301

REACTIONS (1)
  - GALLBLADDER DISORDER [None]
